FAERS Safety Report 6680631-9 (Version None)
Quarter: 2010Q2

REPORT INFORMATION
  Report Type: 
  Country: None (occurrence: None)
  Receive Date: 20100414
  Receipt Date: 20100405
  Transmission Date: 20101027
  Serious: No
  Sender: FDA-Public Use
  Company Number: 2010BI001675

PATIENT
  Sex: Female

DRUGS (1)
  1. TYSABRI [Suspect]
     Indication: MULTIPLE SCLEROSIS
     Route: 042
     Dates: start: 20090818

REACTIONS (19)
  - ANXIETY [None]
  - ASTHENIA [None]
  - COGNITIVE DISORDER [None]
  - DIZZINESS [None]
  - HEADACHE [None]
  - HYPERACUSIS [None]
  - HYPERAESTHESIA [None]
  - MALAISE [None]
  - MULTIPLE SCLEROSIS RELAPSE [None]
  - MUSCLE TIGHTNESS [None]
  - MUSCULOSKELETAL PAIN [None]
  - NASOPHARYNGITIS [None]
  - NECK PAIN [None]
  - PHOTOSENSITIVITY REACTION [None]
  - SENSITIVITY OF TEETH [None]
  - STRESS [None]
  - UPPER RESPIRATORY TRACT CONGESTION [None]
  - VERTIGO [None]
  - VISION BLURRED [None]
